FAERS Safety Report 5020068-1 (Version None)
Quarter: 2006Q2

REPORT INFORMATION
  Report Type: 
  Country: None (occurrence: None)
  Receive Date: 20060607
  Receipt Date: 20060425
  Transmission Date: 20061013
  Serious: Yes (Hospitalization)
  Sender: FDA-Public Use
  Company Number: JP-JPN-A200601373

PATIENT
  Age: 12 Year
  Sex: Male
  Weight: 30 kg

DRUGS (5)
  1. FLOLAN [Suspect]
     Indication: PULMONARY HYPERTENSION
     Route: 042
     Dates: start: 20011010
  2. WARFARIN SODIUM [Concomitant]
     Indication: PULMONARY HYPERTENSION
     Dosage: 2.5MG PER DAY
     Route: 048
  3. FUROSEMIDE [Concomitant]
     Indication: PULMONARY HYPERTENSION
     Route: 048
  4. SPIRONOLACTONE [Concomitant]
     Indication: PULMONARY HYPERTENSION
     Dosage: 25MG TWICE PER DAY
     Route: 048
  5. ALTAT [Concomitant]
     Dosage: 75MG PER DAY
     Route: 048
     Dates: start: 20011016

REACTIONS (6)
  - CHEST DISCOMFORT [None]
  - CHEST X-RAY ABNORMAL [None]
  - DYSPNOEA EXACERBATED [None]
  - PULMONARY CONGESTION [None]
  - PULMONARY OEDEMA [None]
  - WEIGHT DECREASED [None]
